FAERS Safety Report 17767057 (Version 1)
Quarter: 2020Q2

REPORT INFORMATION
  Report Type: Report from Study
  Country: IN (occurrence: IN)
  Receive Date: 20200511
  Receipt Date: 20200511
  Transmission Date: 20200714
  Serious: Yes (Other)
  Sender: FDA-Public Use
  Company Number: NVSC2020IN086220

PATIENT
  Age: 50 Year
  Sex: Male
  Weight: 54 kg

DRUGS (1)
  1. GALVUS MET [Suspect]
     Active Substance: METFORMIN HYDROCHLORIDE\VILDAGLIPTIN
     Indication: DIABETES MELLITUS
     Dosage: UNK UNK, BID (1-0-1)
     Route: 048

REACTIONS (9)
  - Vomiting [Unknown]
  - Menopause [Unknown]
  - Pyrexia [Unknown]
  - General physical health deterioration [Unknown]
  - Oedematous kidney [Unknown]
  - Blood glucose increased [Not Recovered/Not Resolved]
  - Abdominal pain upper [Unknown]
  - Diarrhoea [Unknown]
  - Hypertension [Unknown]

NARRATIVE: CASE EVENT DATE: 201909
